FAERS Safety Report 6853669-6 (Version None)
Quarter: 2010Q3

REPORT INFORMATION
  Report Type: 
  Country: None (occurrence: None)
  Receive Date: 20100717
  Receipt Date: 20071214
  Transmission Date: 20110219
  Serious: No
  Sender: FDA-Public Use
  Company Number: US-PFIZER INC-2007106003

PATIENT
  Sex: Male
  Weight: 69.4 kg

DRUGS (3)
  1. CHANTIX [Suspect]
     Indication: SMOKING CESSATION THERAPY
     Dates: start: 20070601
  2. ALL OTHER THERAPEUTIC PRODUCTS [Concomitant]
  3. VIAGRA [Concomitant]

REACTIONS (3)
  - ABDOMINAL PAIN UPPER [None]
  - WEIGHT DECREASED [None]
  - WEIGHT LOSS DIET [None]
